FAERS Safety Report 17518618 (Version 1)
Quarter: 2020Q1

REPORT INFORMATION
  Report Type: Spontaneous
  Country: JP (occurrence: JP)
  Receive Date: 20200310
  Receipt Date: 20200310
  Transmission Date: 20200409
  Serious: Yes (Hospitalization)
  Sender: FDA-Public Use
  Company Number: JP-ACTELION-A-CH2020-202694

PATIENT
  Sex: Male

DRUGS (7)
  1. OPSUMIT [Suspect]
     Active Substance: MACITENTAN
     Indication: PULMONARY ARTERIAL HYPERTENSION
     Dosage: 0.4 MG, QD
     Route: 048
     Dates: start: 20180709
  2. REVATIO [Concomitant]
     Active Substance: SILDENAFIL CITRATE
     Dosage: 6 MG, QD
     Route: 048
     Dates: start: 20180704
  3. REVATIO [Concomitant]
     Active Substance: SILDENAFIL CITRATE
     Dosage: 3 MG, QD
     Route: 048
     Dates: start: 20180424
  4. OPSUMIT [Suspect]
     Active Substance: MACITENTAN
     Dosage: 1.2 MG, QD
     Route: 048
  5. REVATIO [Concomitant]
     Active Substance: SILDENAFIL CITRATE
     Indication: PULMONARY ARTERIAL HYPERTENSION
     Dosage: 1.5 MG, QD
     Route: 048
     Dates: start: 20180420
  6. OPSUMIT [Suspect]
     Active Substance: MACITENTAN
     Dosage: 0.8 MG, QD
     Route: 048
     Dates: start: 20180712
  7. ADCIRCA [Concomitant]
     Active Substance: TADALAFIL

REACTIONS (3)
  - Pulmonary alveolar haemorrhage [Recovered/Resolved]
  - Interstitial lung disease [Recovering/Resolving]
  - Surgery [Unknown]

NARRATIVE: CASE EVENT DATE: 201807
